FAERS Safety Report 14845206 (Version 1)
Quarter: 2018Q2

REPORT INFORMATION
  Report Type: Spontaneous
  Country: FR (occurrence: FR)
  Receive Date: 20180504
  Receipt Date: 20180504
  Transmission Date: 20180711
  Serious: Yes (Other)
  Sender: FDA-Public Use
  Company Number: FR-009507513-1804FRA010441

PATIENT
  Age: 47 Year
  Sex: Female

DRUGS (1)
  1. IMPLANON [Suspect]
     Active Substance: ETONOGESTREL
     Dosage: 1 DF, IN THE LEFT ARM
     Route: 059
     Dates: start: 2005

REACTIONS (11)
  - Muscular weakness [Not Recovered/Not Resolved]
  - Unintended pregnancy [Recovered/Resolved]
  - Female sterilisation [Unknown]
  - Pain in extremity [Not Recovered/Not Resolved]
  - Ulnar tunnel syndrome [Unknown]
  - Monoparesis [Recovering/Resolving]
  - Incorrect drug administration duration [Unknown]
  - Pregnancy with implant contraceptive [Recovered/Resolved]
  - Abortion [Unknown]
  - Carpal tunnel syndrome [Unknown]
  - Complication associated with device [Unknown]

NARRATIVE: CASE EVENT DATE: 2005
